FAERS Safety Report 6137148-X (Version None)
Quarter: 2009Q1

REPORT INFORMATION
  Report Type: 
  Country: None (occurrence: None)
  Receive Date: 20090326
  Receipt Date: 20090326
  Transmission Date: 20090719
  Serious: Yes (Other)
  Sender: FDA-Public Use
  Company Number: None

PATIENT
  Sex: Female
  Weight: 68.0396 kg

DRUGS (1)
  1. SYNTHROID [Suspect]
     Indication: BLOOD THYROID STIMULATING HORMONE INCREASED
     Dosage: 112 MCG ONCE DAILY PO
     Route: 048
     Dates: start: 19910101, end: 20080101

REACTIONS (21)
  - ABDOMINAL DISTENSION [None]
  - ANXIETY [None]
  - ARTHRALGIA [None]
  - BOWEL MOVEMENT IRREGULARITY [None]
  - DEHYDRATION [None]
  - DISTURBANCE IN ATTENTION [None]
  - FATIGUE [None]
  - FLUID RETENTION [None]
  - HEADACHE [None]
  - HOT FLUSH [None]
  - HYPERHIDROSIS [None]
  - HYPERSENSITIVITY [None]
  - IRRITABILITY [None]
  - MEMORY IMPAIRMENT [None]
  - MUCOSAL DRYNESS [None]
  - MYALGIA [None]
  - POLLAKIURIA [None]
  - POOR QUALITY SLEEP [None]
  - SKIN WARM [None]
  - UNEVALUABLE EVENT [None]
  - WEIGHT INCREASED [None]
